FAERS Safety Report 9567906 (Version 1)
Quarter: 2013Q3

REPORT INFORMATION
  Report Type: Spontaneous
  Country: US (occurrence: US)
  Receive Date: 20130930
  Receipt Date: 20130930
  Transmission Date: 20140515
  Serious: No
  Sender: FDA-Public Use
  Company Number: US-AMGEN-USASP2013056935

PATIENT
  Age: 52 Year
  Sex: Female
  Weight: 68.03 kg

DRUGS (4)
  1. ENBREL [Suspect]
     Indication: PRODUCT USED FOR UNKNOWN INDICATION
     Dosage: 50 MG, QWK
     Route: 058
  2. OMEPRAZOLE [Concomitant]
     Dosage: 20 MG, UNK
  3. VIT B 12 [Concomitant]
     Dosage: 500 MUG, UNK
  4. CALCIUM +D                         /07511201/ [Concomitant]
     Dosage: UNK

REACTIONS (1)
  - Injection site erythema [Unknown]
